FAERS Safety Report 17048199 (Version 1)
Quarter: 2019Q4

REPORT INFORMATION
  Report Type: Spontaneous
  Country: US (occurrence: US)
  Receive Date: 20191021
  Receipt Date: 20191021
  Transmission Date: 20200122
  Serious: Yes (Hospitalization)
  Sender: FDA-Public Use
  Company Number: None

PATIENT
  Age: 56 Year

DRUGS (1)
  1. CREST WHITENING SYSTEM STRIPS WHITESTRIP 3 D WHITE LUXE [Suspect]
     Active Substance: HYDROGEN PEROXIDE
     Dosage: ?          OTHER FREQUENCY:EVERY2TO3DAYS;?
     Route: 031
     Dates: start: 201909

REACTIONS (7)
  - Oral disorder [None]
  - Skin induration [None]
  - Loose tooth [None]
  - Swelling face [None]
  - Mouth swelling [None]
  - Oral pain [None]
  - Facial pain [None]

NARRATIVE: CASE EVENT DATE: 201909
